FAERS Safety Report 11333211 (Version 1)
Quarter: 2015Q3

REPORT INFORMATION
  Report Type: Spontaneous
  Country: US (occurrence: US)
  Receive Date: 20150803
  Receipt Date: 20150803
  Transmission Date: 20151125
  Serious: No
  Sender: FDA-Public Use
  Company Number: US-ELI_LILLY_AND_COMPANY-US200711002057

PATIENT
  Sex: Female

DRUGS (1)
  1. ZYPREXA ZYDIS [Suspect]
     Active Substance: OLANZAPINE
     Indication: DEPRESSION
     Dosage: 2.5 MG, UNK
     Route: 048

REACTIONS (6)
  - Agitation [Unknown]
  - Feeling jittery [Unknown]
  - Nausea [Unknown]
  - Heart rate increased [Unknown]
  - Tremor [Unknown]
  - Anxiety [Unknown]
